FAERS Safety Report 8958018 (Version 1)
Quarter: 2012Q4

REPORT INFORMATION
  Report Type: 
  Country: US (occurrence: US)
  Receive Date: 20121211
  Receipt Date: 20121211
  Transmission Date: 20130627
  Serious: No
  Sender: FDA-Public Use
  Company Number: US-BIOGENIDEC-2012BI058340

PATIENT
  Sex: Male

DRUGS (1)
  1. TYSABRI [Suspect]
     Indication: MULTIPLE SCLEROSIS
     Route: 042
     Dates: start: 20110709, end: 201205

REACTIONS (3)
  - Bladder disorder [Recovered/Resolved]
  - Prostatic disorder [Recovered/Resolved]
  - Drug effect incomplete [Recovered/Resolved]
